FAERS Safety Report 16997704 (Version 1)
Quarter: 2019Q4

REPORT INFORMATION
  Report Type: Spontaneous
  Country: US (occurrence: US)
  Receive Date: 20190924
  Receipt Date: 20190924
  Transmission Date: 20200122
  Serious: Yes (Life-Threatening, Hospitalization)
  Sender: FDA-Public Use
  Company Number: None

PATIENT
  Age: 70 Year
  Sex: Male

DRUGS (2)
  1. SPIRONOLACTONE. [Suspect]
     Active Substance: SPIRONOLACTONE
     Indication: CHRONIC KIDNEY DISEASE
     Route: 048
     Dates: start: 20190320, end: 20190614
  2. SPIRONOLACTONE. [Suspect]
     Active Substance: SPIRONOLACTONE
     Indication: PROTEINURIA

REACTIONS (8)
  - Sputum discoloured [None]
  - Back pain [None]
  - Hyperkalaemia [None]
  - Hyperhidrosis [None]
  - Dyspnoea [None]
  - Dysuria [None]
  - Productive cough [None]
  - Groin pain [None]

NARRATIVE: CASE EVENT DATE: 20190614
